FAERS Safety Report 24206853 (Version 1)
Quarter: 2024Q3

REPORT INFORMATION
  Report Type: Spontaneous
  Country: US (occurrence: US)
  Receive Date: 20240813
  Receipt Date: 20240813
  Transmission Date: 20241016
  Serious: No
  Sender: AMGEN
  Company Number: US-AMGEN-USASP2024158237

PATIENT
  Age: 74 Year
  Sex: Male

DRUGS (2)
  1. REPATHA [Suspect]
     Active Substance: EVOLOCUMAB
     Indication: Type V hyperlipidaemia
     Dosage: UNK UNK, (1 MILLILITER) Q2WK
     Route: 065
     Dates: start: 20240508
  2. REPATHA [Suspect]
     Active Substance: EVOLOCUMAB
     Indication: Computerised tomogram heart abnormal

REACTIONS (4)
  - Device difficult to use [Unknown]
  - Wrong technique in product usage process [Unknown]
  - Accidental exposure to product [Unknown]
  - Injection site indentation [Unknown]

NARRATIVE: CASE EVENT DATE: 20240801
